FAERS Safety Report 8960360 (Version 2)
Quarter: 2012Q4

REPORT INFORMATION
  Report Type: 
  Country: US (occurrence: US)
  Receive Date: 20121211
  Receipt Date: 20121231
  Transmission Date: 20130627
  Serious: Yes (Hospitalization)
  Sender: FDA-Public Use
  Company Number: US-BIOGENIDEC-2012BI057647

PATIENT
  Age: 41 Year
  Sex: Female

DRUGS (1)
  1. TYSABRI [Suspect]
     Indication: MULTIPLE SCLEROSIS
     Route: 042
     Dates: start: 20101112

REACTIONS (6)
  - Urinary tract infection [Unknown]
  - Asthenia [Unknown]
  - Fall [Unknown]
  - Arthropathy [Recovered/Resolved]
  - Pyrexia [Recovered/Resolved]
  - Urine abnormality [Unknown]
